FAERS Safety Report 7096083-3 (Version None)
Quarter: 2010Q4

REPORT INFORMATION
  Report Type: 
  Country: None (occurrence: None)
  Receive Date: 20101111
  Receipt Date: 20101101
  Transmission Date: 20110411
  Serious: Yes (Other)
  Sender: FDA-Public Use
  Company Number: US-ROCHE-718934

PATIENT
  Sex: Male
  Weight: 90.7 kg

DRUGS (2)
  1. ACCUTANE [Suspect]
     Route: 048
     Dates: start: 20070405
  2. ACCUTANE [Suspect]
     Route: 048
     Dates: start: 20070503, end: 20070507

REACTIONS (6)
  - ASPARTATE AMINOTRANSFERASE INCREASED [None]
  - CHAPPED LIPS [None]
  - COLITIS [None]
  - GASTROINTESTINAL INJURY [None]
  - INFLAMMATORY BOWEL DISEASE [None]
  - INTESTINAL HAEMORRHAGE [None]
